FAERS Safety Report 7484012-X (Version None)
Quarter: 2011Q2

REPORT INFORMATION
  Report Type: 
  Country: None (occurrence: None)
  Receive Date: 20110513
  Receipt Date: 20110513
  Transmission Date: 20111010
  Serious: Yes (Life-Threatening, Hospitalization)
  Sender: FDA-Public Use
  Company Number: None

PATIENT
  Sex: Male
  Weight: 22.2263 kg

DRUGS (2)
  1. PROZAC [Suspect]
     Indication: BIPOLAR I DISORDER
     Dosage: 5 MG ONCE A DAY PO
     Route: 048
     Dates: start: 20110406, end: 20110429
  2. BUSPAR [Suspect]
     Indication: MENTAL DISORDER
     Dosage: 15 MG TWICE A DAY PO
     Route: 048
     Dates: start: 20110309, end: 20110405

REACTIONS (5)
  - PARANOIA [None]
  - SUICIDAL IDEATION [None]
  - ABNORMAL BEHAVIOUR [None]
  - PHYSICAL ASSAULT [None]
  - SEXUALLY INAPPROPRIATE BEHAVIOUR [None]
